FAERS Safety Report 16214232 (Version 1)
Quarter: 2019Q2

REPORT INFORMATION
  Report Type: Spontaneous
  Country: US (occurrence: US)
  Receive Date: 20190418
  Receipt Date: 20190418
  Transmission Date: 20190711
  Serious: No
  Sender: FDA-Public Use
  Company Number: US-SA-2019SA107832

PATIENT
  Age: 6 Year
  Sex: Male

DRUGS (7)
  1. LIDOCAINE AND PRILOCAINE [Concomitant]
     Active Substance: LIDOCAINE\PRILOCAINE
     Indication: PREMEDICATION
     Dosage: 2.5 %
     Route: 061
     Dates: start: 20181005
  2. SODIUM CHLORIDE. [Concomitant]
     Active Substance: SODIUM CHLORIDE
     Dosage: 0.9 %
     Route: 042
     Dates: start: 20181005
  3. EPINEPHRINE. [Concomitant]
     Active Substance: EPINEPHRINE
     Dosage: 0.15 MG, PRN
     Route: 030
     Dates: start: 20181005
  4. DIPHENHYDRAMINE. [Concomitant]
     Active Substance: DIPHENHYDRAMINE
     Dosage: 50 MG/ML
     Route: 042
     Dates: start: 20181005
  5. STERILE WATER [Concomitant]
     Active Substance: WATER
     Dosage: 20 ML
     Route: 042
     Dates: start: 20181005
  6. NORMAL SALINE [Concomitant]
     Active Substance: SODIUM CHLORIDE
     Dosage: 0.9 %
     Route: 042
     Dates: start: 20181005
  7. CEREZYME [Suspect]
     Active Substance: IMIGLUCERASE
     Indication: GAUCHER^S DISEASE
     Dosage: 800 UNITS
     Route: 041

REACTIONS (1)
  - Impetigo [Unknown]
